FAERS Safety Report 20910045 (Version 2)
Quarter: 2022Q2

REPORT INFORMATION
  Report Type: Spontaneous
  Country: US (occurrence: US)
  Receive Date: 20220603
  Receipt Date: 20220607
  Transmission Date: 20220721
  Serious: No
  Sender: FDA-Public Use
  Company Number: US-NOVARTISTESTPH-NVSC2022US127570

PATIENT
  Sex: Male

DRUGS (2)
  1. ZOMETA [Suspect]
     Active Substance: ZOLEDRONIC ACID
     Indication: Product used for unknown indication
     Dosage: UNK (PHYSICIAN SUGGESTED TO TAKE EVERY 90 DAYS)
     Route: 065
  2. ENZALUTAMIDE [Suspect]
     Active Substance: ENZALUTAMIDE
     Indication: Product used for unknown indication
     Dosage: 160 MG, QD
     Route: 048

REACTIONS (6)
  - Pain [Unknown]
  - Vision blurred [Unknown]
  - Pyrexia [Unknown]
  - Influenza like illness [Unknown]
  - Myalgia [Unknown]
  - Nausea [Unknown]
